FAERS Safety Report 15280512 (Version 4)
Quarter: 2019Q1

REPORT INFORMATION
  Report Type: Report from Study
  Country: US (occurrence: US)
  Receive Date: 20180815
  Receipt Date: 20190315
  Transmission Date: 20190417
  Serious: Yes (Other)
  Sender: FDA-Public Use
  Company Number: PHEH2018US033712

PATIENT
  Age: 47 Year
  Sex: Female

DRUGS (5)
  1. VITAMIN D3 [Concomitant]
     Active Substance: CHOLECALCIFEROL
     Indication: PRODUCT USED FOR UNKNOWN INDICATION
     Route: 065
  2. MULTIVITAMINS [Concomitant]
     Active Substance: VITAMINS
     Indication: PRODUCT USED FOR UNKNOWN INDICATION
     Route: 065
  3. GILENYA [Suspect]
     Active Substance: FINGOLIMOD HYDROCHLORIDE
     Dosage: 0.5 MG, QD
     Route: 048
     Dates: start: 20181123
  4. GILENYA [Suspect]
     Active Substance: FINGOLIMOD HYDROCHLORIDE
     Indication: MULTIPLE SCLEROSIS
     Dosage: 0.5 MG,QD
     Route: 048
     Dates: start: 201807
  5. GILENYA [Suspect]
     Active Substance: FINGOLIMOD HYDROCHLORIDE
     Dosage: 0.5 MG, QD
     Route: 048
     Dates: start: 20180802, end: 20181120

REACTIONS (19)
  - Anxiety [Unknown]
  - Carpal tunnel syndrome [Unknown]
  - Asthma [Unknown]
  - Weight decreased [Unknown]
  - Bladder disorder [Unknown]
  - Vertigo [Unknown]
  - Peripheral swelling [Unknown]
  - Nerve injury [Unknown]
  - Fatigue [Unknown]
  - Haemangioma of liver [Unknown]
  - Gastric disorder [Unknown]
  - Gastrointestinal disorder [Unknown]
  - Dizziness [Unknown]
  - Pericardial effusion [Unknown]
  - Burning sensation [Unknown]
  - Cyst [Unknown]
  - Hepatic mass [Unknown]
  - Decreased appetite [Unknown]
  - Intervertebral disc protrusion [Unknown]

NARRATIVE: CASE EVENT DATE: 20181123
